FAERS Safety Report 4991581-8 (Version None)
Quarter: 2006Q2

REPORT INFORMATION
  Report Type: 
  Country: None (occurrence: None)
  Receive Date: 20060502
  Receipt Date: 20060419
  Transmission Date: 20061013
  Serious: Yes (Death, Hospitalization)
  Sender: FDA-Public Use
  Company Number: 2006054269

PATIENT
  Age: 56 Year
  Sex: Male
  Weight: 55 kg

DRUGS (2)
  1. METHYLPREDNISOLONE [Suspect]
     Indication: IDIOPATHIC PULMONARY FIBROSIS
     Dosage: 1 GRAM (1 IN 1 D)
     Dates: start: 20050201, end: 20050302
  2. PREDNISOLONE [Suspect]
     Indication: IDIOPATHIC PULMONARY FIBROSIS
     Dosage: 20 MG
     Dates: start: 20050301, end: 20050301

REACTIONS (12)
  - BRONCHOPULMONARY ASPERGILLOSIS [None]
  - CONDITION AGGRAVATED [None]
  - DRUG INEFFECTIVE [None]
  - HEPATIC FUNCTION ABNORMAL [None]
  - HYPOALBUMINAEMIA [None]
  - IDIOPATHIC PULMONARY FIBROSIS [None]
  - INFLUENZA [None]
  - LUNG CONSOLIDATION [None]
  - LYMPHOCYTE COUNT DECREASED [None]
  - PNEUMONIA [None]
  - RENAL IMPAIRMENT [None]
  - RESPIRATORY FAILURE [None]
